FAERS Safety Report 6013055-8 (Version None)
Quarter: 2008Q4

REPORT INFORMATION
  Report Type: 
  Country: None (occurrence: None)
  Receive Date: 20081217
  Receipt Date: 20081206
  Transmission Date: 20090506
  Serious: Yes (Hospitalization)
  Sender: FDA-Public Use
  Company Number: 2008SU0296

PATIENT
  Age: 39 Year
  Sex: Male
  Weight: 83.9154 kg

DRUGS (8)
  1. SULAR [Suspect]
     Indication: HYPERTENSION
     Dosage: 10 MG, DAILY, PO
     Route: 048
     Dates: start: 19960101, end: 20081001
  2. SULAR [Suspect]
     Indication: HYPERTENSION
     Dosage: 8.5 MG, DAILY, PO
     Route: 048
     Dates: start: 20081001, end: 20081207
  3. ACCUPRIL [Concomitant]
  4. PREDNISONE [Concomitant]
  5. ALLOPURINOL [Concomitant]
  6. KETABOLE [Concomitant]
  7. NEOPRIL [Concomitant]
  8. CELLCEPT [Concomitant]

REACTIONS (8)
  - DIZZINESS [None]
  - FLUSHING [None]
  - HEADACHE [None]
  - NASAL CONGESTION [None]
  - OEDEMA PERIPHERAL [None]
  - PALPITATIONS [None]
  - RENAL TRANSPLANT [None]
  - SENSORY DISTURBANCE [None]
